FAERS Safety Report 23939623 (Version 1)
Quarter: 2024Q2

REPORT INFORMATION
  Report Type: Spontaneous
  Country: US (occurrence: US)
  Receive Date: 20240605
  Receipt Date: 20240605
  Transmission Date: 20240716
  Serious: No
  Sender: FDA-Public Use
  Company Number: US-OTSUKA-2023_012620

PATIENT
  Age: 20 Year
  Sex: Female

DRUGS (1)
  1. TOLVAPTAN [Suspect]
     Active Substance: TOLVAPTAN
     Indication: Congenital cystic kidney disease
     Dosage: 60 MG, QD
     Route: 065

REACTIONS (4)
  - Gilbert^s syndrome [Not Recovered/Not Resolved]
  - Blood bilirubin increased [Recovering/Resolving]
  - Polydipsia [Unknown]
  - Polyuria [Unknown]
